FAERS Safety Report 21411937 (Version 1)
Quarter: 2022Q4

REPORT INFORMATION
  Report Type: Spontaneous
  Country: CN (occurrence: CN)
  Receive Date: 20221005
  Receipt Date: 20221005
  Transmission Date: 20230113
  Serious: Yes (Other)
  Sender: FDA-Public Use
  Company Number: CN-AMGEN-CHNSP2022168867

PATIENT

DRUGS (6)
  1. FILGRASTIM [Suspect]
     Active Substance: FILGRASTIM
     Indication: Prophylaxis
     Dosage: 6 MILLIGRAM, QD
     Route: 058
  2. DOCETAXEL [Concomitant]
     Active Substance: DOCETAXEL
  3. PLATINUM [Concomitant]
     Active Substance: PLATINUM
  4. PACLITAXEL [Concomitant]
     Active Substance: PACLITAXEL
  5. PEMETREXED [Concomitant]
     Active Substance: PEMETREXED
  6. GEMCITABINE [Concomitant]
     Active Substance: GEMCITABINE

REACTIONS (8)
  - Neutropenia [Unknown]
  - Febrile neutropenia [Unknown]
  - Thrombocytopenia [Unknown]
  - White blood cell count decreased [Unknown]
  - Pneumonia [Unknown]
  - Alanine aminotransferase increased [Unknown]
  - Aspartate aminotransferase increased [Unknown]
  - Anaemia [Unknown]
